FAERS Safety Report 18179640 (Version 1)
Quarter: 2020Q3

REPORT INFORMATION
  Report Type: Spontaneous
  Country: US (occurrence: US)
  Receive Date: 20200820
  Receipt Date: 20200820
  Transmission Date: 20201103
  Serious: Yes (Death, Hospitalization, Disabling, Other)
  Sender: FDA-Public Use
  Company Number: US-PURDUE-USA-2020-0161975

PATIENT
  Age: 54 Year
  Sex: Female
  Weight: 132.88 kg

DRUGS (17)
  1. OXYCODONE HCL TABLETS (RHODES 91?490) [Suspect]
     Active Substance: OXYCODONE HYDROCHLORIDE
     Dosage: 50 MG, Q4H
     Route: 048
  2. OXYIR [Suspect]
     Active Substance: OXYCODONE HYDROCHLORIDE
     Indication: PRODUCT USED FOR UNKNOWN INDICATION
     Dosage: 15 MG, Q4H PRN
     Route: 048
  3. OXYCONTIN [Suspect]
     Active Substance: OXYCODONE HYDROCHLORIDE
     Indication: PAIN
     Dosage: 40 MG, Q12H
     Route: 048
  4. TYLENOL [Suspect]
     Active Substance: ACETAMINOPHEN
     Indication: PAIN
     Dosage: 650 MG, Q12H
     Route: 048
  5. KETAMINE [Suspect]
     Active Substance: KETAMINE
     Indication: PRODUCT USED FOR UNKNOWN INDICATION
     Dosage: UNKNOWN
     Route: 065
  6. ZOLPIDEM [Suspect]
     Active Substance: ZOLPIDEM TARTRATE
     Indication: PRODUCT USED FOR UNKNOWN INDICATION
     Dosage: UNKNOWN
     Route: 065
  7. DILAUDID [Suspect]
     Active Substance: HYDROMORPHONE HYDROCHLORIDE
     Indication: BREAKTHROUGH PAIN
     Dosage: 4 MG, Q4H PRN
     Route: 048
  8. HYDROCODONE BITARTRATE AND ACETAMINOPHEN [Suspect]
     Active Substance: ACETAMINOPHEN\HYDROCODONE BITARTRATE
     Indication: PAIN
     Dosage: 335 MG, Q4H PRN
     Route: 048
  9. ACETAMINOPHEN. [Suspect]
     Active Substance: ACETAMINOPHEN
     Indication: PRODUCT USED FOR UNKNOWN INDICATION
     Dosage: UNKNOWN
     Route: 065
  10. MS CONTIN [Suspect]
     Active Substance: MORPHINE SULFATE
     Indication: PRODUCT USED FOR UNKNOWN INDICATION
     Dosage: UNKNOWN
     Route: 048
  11. AMITRIPTYLINE [Suspect]
     Active Substance: AMITRIPTYLINE
     Indication: PRODUCT USED FOR UNKNOWN INDICATION
     Dosage: UNKNOWN
     Route: 065
  12. DILAUDID [Suspect]
     Active Substance: HYDROMORPHONE HYDROCHLORIDE
     Dosage: 4 MG, Q2H PRN
     Route: 048
  13. OXYCODONE/ ACETAMINOPHEN TABLETS [Suspect]
     Active Substance: ACETAMINOPHEN\OXYCODONE HYDROCHLORIDE
     Indication: PRODUCT USED FOR UNKNOWN INDICATION
     Dosage: UNKNOWN
     Route: 048
  14. OXYCODONE HCL TABLETS (RHODES 91?490) [Suspect]
     Active Substance: OXYCODONE HYDROCHLORIDE
     Indication: PAIN
     Dosage: 40 MG, Q12H
     Route: 048
  15. OXYMORPHONE [Suspect]
     Active Substance: OXYMORPHONE
     Indication: PRODUCT USED FOR UNKNOWN INDICATION
     Dosage: UNKNOWN
     Route: 065
  16. NORCO [Suspect]
     Active Substance: ACETAMINOPHEN\HYDROCODONE BITARTRATE
     Indication: PAIN
     Dosage: 335 MG, Q4H PRN
     Route: 048
  17. NORTRIPTYLINE [Suspect]
     Active Substance: NORTRIPTYLINE
     Indication: PRODUCT USED FOR UNKNOWN INDICATION
     Dosage: UNKNOWN
     Route: 065

REACTIONS (52)
  - Toxicity to various agents [Fatal]
  - Portal tract inflammation [Unknown]
  - Acute myocardial infarction [Unknown]
  - Aortic aneurysm rupture [Unknown]
  - Hernia repair [Unknown]
  - Arteriosclerosis coronary artery [Unknown]
  - Osteoarthritis [Unknown]
  - Drug tolerance [Unknown]
  - Confusional state [Unknown]
  - Coronary artery disease [Fatal]
  - Congestive hepatopathy [Unknown]
  - Stent placement [Unknown]
  - Atrial fibrillation [Unknown]
  - Abdominal adhesions [Unknown]
  - Hyponatraemia [Unknown]
  - Arthralgia [Unknown]
  - Cardio-respiratory arrest [Fatal]
  - Drug detoxification [Unknown]
  - Obesity [Unknown]
  - Contusion [Unknown]
  - Iron deficiency [Unknown]
  - Foot operation [Unknown]
  - Disability [Unknown]
  - Cardiac failure congestive [Unknown]
  - Overdose [Fatal]
  - Pulmonary congestion [Unknown]
  - Knee arthroplasty [Unknown]
  - Respiratory failure [Unknown]
  - Clostridium difficile colitis [Unknown]
  - Mental disorder [Unknown]
  - Lymphadenopathy mediastinal [Unknown]
  - Thyroid cancer [Unknown]
  - Gastric bypass [Unknown]
  - Pericarditis adhesive [Unknown]
  - Amnesia [Unknown]
  - Pleural adhesion [Unknown]
  - Cell death [Unknown]
  - Hyperlipidaemia [Unknown]
  - Pneumonia [Unknown]
  - Angioplasty [Unknown]
  - Emphysema [Unknown]
  - Swelling [Unknown]
  - Menopausal symptoms [Unknown]
  - Drug dependence [Unknown]
  - Drug use disorder [Unknown]
  - Thyroid operation [Unknown]
  - Post procedural haemorrhage [Unknown]
  - Anaemia [Unknown]
  - Pain [Unknown]
  - Stress [Unknown]
  - Nerve injury [Unknown]
  - Psychotic disorder [Unknown]

NARRATIVE: CASE EVENT DATE: 200607
